FAERS Safety Report 5273330-1 (Version None)
Quarter: 2007Q1

REPORT INFORMATION
  Report Type: 
  Country: None (occurrence: None)
  Receive Date: 20070319
  Receipt Date: 20070228
  Transmission Date: 20070707
  Serious: Yes (Other)
  Sender: FDA-Public Use
  Company Number: 15833

PATIENT
  Age: 51 Year
  Sex: Female

DRUGS (1)
  1. PACLITAXEL [Suspect]
     Indication: OVARIAN CANCER
     Dosage: 310 MG QD IV
     Route: 042
     Dates: start: 20070109, end: 20070109

REACTIONS (4)
  - BACK PAIN [None]
  - FEELING HOT [None]
  - FLUSHING [None]
  - MUSCULOSKELETAL STIFFNESS [None]
